FAERS Safety Report 24452011 (Version 1)
Quarter: 2024Q4

REPORT INFORMATION
  Report Type: Spontaneous
  Country: US (occurrence: US)
  Receive Date: 20241017
  Receipt Date: 20241017
  Transmission Date: 20250115
  Serious: No
  Sender: SUNOVION
  Company Number: US-SMPA-202312-URV-002415AA

PATIENT
  Sex: Female

DRUGS (1)
  1. GEMTESA [Suspect]
     Active Substance: VIBEGRON
     Indication: Urinary tract disorder
     Dosage: 75 MG
     Route: 065
     Dates: start: 20231205

REACTIONS (1)
  - Pruritus [Not Recovered/Not Resolved]
